FAERS Safety Report 10985422 (Version 1)
Quarter: 2015Q2

REPORT INFORMATION
  Report Type: Spontaneous
  Country: US (occurrence: None)
  Receive Date: 20150403
  Receipt Date: 20150403
  Transmission Date: 20150821
  Serious: Yes (Hospitalization)
  Sender: FDA-Public Use
  Company Number: None

PATIENT
  Age: 70 Year
  Sex: Male
  Weight: 94 kg

DRUGS (9)
  1. DOCUSATE SODIUM (COLACE) [Concomitant]
  2. AMIODARONE, 200 MG, SANDOZ [Suspect]
     Active Substance: AMIODARONE
     Indication: SUPRAVENTRICULAR TACHYCARDIA
     Route: 048
  3. METOPROLOL (LOPRESSOR) [Concomitant]
  4. LISINOPRIL. [Suspect]
     Active Substance: LISINOPRIL
     Indication: HYPERTENSION
     Route: 048
  5. LIPITOR [Concomitant]
     Active Substance: ATORVASTATIN CALCIUM
  6. TRAMADOL (ULTRAM) [Concomitant]
  7. ASPIRIN 81 MG CHEWABLE TABLET [Concomitant]
  8. PLAVIX [Concomitant]
     Active Substance: CLOPIDOGREL BISULFATE
  9. HYDROCODONE-ACETAMINOPHEN (NORCO) [Concomitant]

REACTIONS (5)
  - Orthostatic hypotension [None]
  - Urticaria [None]
  - Lip swelling [None]
  - Swelling face [None]
  - Dizziness [None]

NARRATIVE: CASE EVENT DATE: 20141211
